FAERS Safety Report 4455570-4 (Version None)
Quarter: 2004Q3

REPORT INFORMATION
  Report Type: 
  Country: None (occurrence: None)
  Receive Date: 20040917
  Receipt Date: 20040824
  Transmission Date: 20050211
  Serious: Yes (Hospitalization)
  Sender: FDA-Public Use
  Company Number: USA040465249

PATIENT
  Age: 10 Year
  Sex: Female
  Weight: 57 kg

DRUGS (5)
  1. HUMATROPE [Suspect]
     Indication: GROWTH HORMONE DEFICIENCY
     Dosage: 2.2 MG DAY
     Dates: start: 20030613
  2. LUPRON [Concomitant]
  3. DDAVP [Concomitant]
  4. LEVOXYL [Concomitant]
  5. TEGRETOL [Concomitant]

REACTIONS (14)
  - ASPARTATE AMINOTRANSFERASE INCREASED [None]
  - BLOOD THYROID STIMULATING HORMONE DECREASED [None]
  - CATHETER RELATED COMPLICATION [None]
  - CSF PROTEIN [None]
  - DIABETES MELLITUS NON-INSULIN-DEPENDENT [None]
  - DRUG INTOLERANCE [None]
  - ENERGY INCREASED [None]
  - FEELING COLD [None]
  - HIRSUTISM [None]
  - OEDEMA PERIPHERAL [None]
  - PITTING OEDEMA [None]
  - PROTEIN TOTAL INCREASED [None]
  - THIRST [None]
  - WEIGHT INCREASED [None]
